FAERS Safety Report 6092440-2 (Version None)
Quarter: 2009Q1

REPORT INFORMATION
  Report Type: 
  Country: None (occurrence: None)
  Receive Date: 20090225
  Receipt Date: 20090214
  Transmission Date: 20090719
  Serious: Yes (Death)
  Sender: FDA-Public Use
  Company Number: US-PFIZER INC-2009164279

PATIENT
  Sex: Female

DRUGS (1)
  1. SUTENT [Suspect]
     Indication: BREAST CANCER
     Dosage: 50 MG, 1X/DAY, FOR 4 WEEKS
     Route: 048

REACTIONS (1)
  - RESPIRATORY FAILURE [None]
